FAERS Safety Report 5369653-8 (Version None)
Quarter: 2007Q2

REPORT INFORMATION
  Report Type: 
  Country: None (occurrence: None)
  Receive Date: 20070621
  Receipt Date: 20070618
  Transmission Date: 20071010
  Serious: Yes (Death, Hospitalization)
  Sender: FDA-Public Use
  Company Number: 16792

PATIENT
  Age: 76 Year
  Sex: Male

DRUGS (5)
  1. CYTARABINE [Suspect]
     Indication: ACUTE MYELOID LEUKAEMIA
     Dosage: 20 MCG/KG QD SC
     Route: 058
     Dates: start: 20070313, end: 20070322
  2. IMIPENEM [Concomitant]
  3. VANCOMYCIN HCL [Concomitant]
  4. AMINOPHYLLIN [Concomitant]
  5. OXYGEN [Concomitant]

REACTIONS (4)
  - BRONCHOPNEUMONIA [None]
  - CARDIOPULMONARY FAILURE [None]
  - HAEMOGLOBIN DECREASED [None]
  - PLATELET COUNT DECREASED [None]
